FAERS Safety Report 8609134-9 (Version None)
Quarter: 2012Q3

REPORT INFORMATION
  Report Type: 
  Country: None (occurrence: None)
  Receive Date: 20120808
  Receipt Date: 20120723
  Transmission Date: 20120928
  Serious: Yes (Hospitalization, Other)
  Sender: FDA-Public Use
  Company Number: ABR_00564_2012

PATIENT

DRUGS (3)
  1. CEFAZOLIN [Suspect]
     Indication: PRODUCT USED FOR UNKNOWN INDICATION
     Dosage: (DF TRANSPLACENTAL)
     Route: 064
  2. ERYTHROMYCIN [Suspect]
     Indication: PRODUCT USED FOR UNKNOWN INDICATION
     Dosage: (DF TRANSPLACENTAL)
     Route: 064
  3. RITODRINE HYDROCHLORIDE [Suspect]
     Indication: PRODUCT USED FOR UNKNOWN INDICATION
     Dosage: (DF TRANSPLACENTAL)
     Route: 064

REACTIONS (6)
  - INTRAVENTRICULAR HAEMORRHAGE [None]
  - TACHYCARDIA FOETAL [None]
  - FOETAL HEART RATE DECELERATION [None]
  - FOETAL EXPOSURE DURING PREGNANCY [None]
  - ESCHERICHIA INFECTION [None]
  - PREMATURE BABY [None]
